FAERS Safety Report 11564921 (Version 4)
Quarter: 2016Q3

REPORT INFORMATION
  Report Type: Spontaneous
  Country: US (occurrence: US)
  Receive Date: 20150928
  Receipt Date: 20160712
  Transmission Date: 20161109
  Serious: Yes (Hospitalization)
  Sender: FDA-Public Use
  Company Number: US-EXELIXIS-CABO-13003595

PATIENT
  Age: 71 Year
  Sex: Female

DRUGS (6)
  1. COMETRIQ [Suspect]
     Active Substance: CABOZANTINIB S-MALATE
     Dosage: 100 MG, QD
     Route: 048
     Dates: start: 2016
  2. ANTIHYPERTENSIVES [Concomitant]
     Active Substance: UNSPECIFIED INGREDIENT
  3. ANTI-DIARRHEAL [Concomitant]
     Active Substance: LOPERAMIDE HYDROCHLORIDE
  4. COMETRIQ [Suspect]
     Active Substance: CABOZANTINIB S-MALATE
     Dosage: 140 MG, QD
     Route: 048
     Dates: start: 20131025, end: 201506
  5. COMETRIQ [Suspect]
     Active Substance: CABOZANTINIB S-MALATE
     Dosage: 100 MG, QD
     Route: 048
     Dates: start: 201506, end: 201604
  6. COMETRIQ [Suspect]
     Active Substance: CABOZANTINIB S-MALATE
     Indication: THYROID CANCER
     Dosage: 140 MG, QD
     Route: 048
     Dates: start: 20131025, end: 201312

REACTIONS (14)
  - Amnesia [Unknown]
  - Hypertension [Unknown]
  - Onychoclasis [Recovering/Resolving]
  - Alopecia [Unknown]
  - Dry mouth [Unknown]
  - Peripheral swelling [Recovering/Resolving]
  - Malaise [Unknown]
  - Pruritus [Not Recovered/Not Resolved]
  - Body temperature decreased [Unknown]
  - Oropharyngeal pain [Unknown]
  - Cerebrovascular accident [Unknown]
  - Hypotension [Recovered/Resolved]
  - Blood calcium decreased [Unknown]
  - Dehydration [Unknown]

NARRATIVE: CASE EVENT DATE: 20131030
